FAERS Safety Report 8132385-7 (Version None)
Quarter: 2012Q1

REPORT INFORMATION
  Report Type: 
  Country: None (occurrence: None)
  Receive Date: 20120213
  Receipt Date: 20120201
  Transmission Date: 20120608
  Serious: Yes (Death, Other)
  Sender: FDA-Public Use
  Company Number: US-ELI_LILLY_AND_COMPANY-US201110006844

PATIENT
  Sex: Female

DRUGS (4)
  1. FORTEO [Suspect]
     Dosage: 20 UG, QD
     Route: 065
  2. FORTEO [Suspect]
     Dosage: 20 UG, QD
  3. FORTEO [Suspect]
     Indication: OSTEOPOROSIS
     Dosage: 20 UG, QD
     Route: 065
  4. FORTEO [Suspect]
     Dosage: 20 UG, QD

REACTIONS (12)
  - DEATH [None]
  - INJECTION SITE VESICLES [None]
  - INJECTION SITE HAEMORRHAGE [None]
  - CONSTIPATION [None]
  - MYOCARDIAL INFARCTION [None]
  - INJECTION SITE ERYTHEMA [None]
  - FALL [None]
  - WRONG TECHNIQUE IN DRUG USAGE PROCESS [None]
  - DIZZINESS [None]
  - HIP FRACTURE [None]
  - HIP ARTHROPLASTY [None]
  - OXYGEN SATURATION DECREASED [None]
